FAERS Safety Report 10836228 (Version 1)
Quarter: 2015Q1

REPORT INFORMATION
  Report Type: Report from Study
  Country: FR (occurrence: FR)
  Receive Date: 20150219
  Receipt Date: 20150219
  Transmission Date: 20150721
  Serious: Yes (Hospitalization, Other)
  Sender: FDA-Public Use
  Company Number: FR-GILEAD-2015-0137743

PATIENT
  Age: 60 Year
  Sex: Male
  Weight: 60 kg

DRUGS (11)
  1. ONGLYZA [Concomitant]
     Active Substance: SAXAGLIPTIN HYDROCHLORIDE
     Indication: DIABETES MELLITUS
     Dosage: UNK
     Dates: start: 201408
  2. PROPRANOLOL [Concomitant]
     Active Substance: PROPRANOLOL\PROPRANOLOL HYDROCHLORIDE
     Dosage: 160 MG, UNK
     Dates: start: 2010
  3. ESOMEPRAZOLE [Concomitant]
     Active Substance: ESOMEPRAZOLE
     Indication: DYSPEPSIA
     Dosage: 20 MG, QHS
     Dates: start: 201407
  4. BUPRENORPHINE [Concomitant]
     Active Substance: BUPRENORPHINE
     Dosage: 1.2 MG, QOD
  5. SERESTA [Concomitant]
     Active Substance: OXAZEPAM
     Indication: DIABETES MELLITUS
     Dosage: 1 DF, UNK
     Dates: start: 2010
  6. AUGMENTIN [Concomitant]
     Active Substance: AMOXICILLIN\CLAVULANATE POTASSIUM
     Indication: ESCHERICHIA SEPSIS
     Dosage: 3 G, QD
     Dates: start: 201407, end: 20140910
  7. SIMEPREVIR [Suspect]
     Active Substance: SIMEPREVIR
     Indication: HEPATITIS C
     Dosage: 150 MG, QD
     Route: 065
     Dates: start: 20140603, end: 20140826
  8. SOFOSBUVIR [Suspect]
     Active Substance: SOFOSBUVIR
     Indication: HEPATITIS C
     Dosage: 400 MG, QD
     Route: 065
     Dates: start: 20140603, end: 20140826
  9. BUPRENORPHINE [Concomitant]
     Active Substance: BUPRENORPHINE
     Dosage: 0.8 MG, QOD
  10. CRESTOR [Concomitant]
     Active Substance: ROSUVASTATIN CALCIUM
     Indication: HYPERCHOLESTEROLAEMIA
     Dosage: 10 MG, QHS
     Dates: start: 2010
  11. PLAVIX [Concomitant]
     Active Substance: CLOPIDOGREL BISULFATE
     Dosage: 75 MG, QHS

REACTIONS (2)
  - Jaundice [Recovered/Resolved]
  - Hepatitis alcoholic [Recovered/Resolved]

NARRATIVE: CASE EVENT DATE: 20140728
